FAERS Safety Report 15965123 (Version 1)
Quarter: 2019Q1

REPORT INFORMATION
  Report Type: Spontaneous
  Country: US (occurrence: US)
  Receive Date: 20190215
  Receipt Date: 20190215
  Transmission Date: 20190418
  Serious: Yes (Other)
  Sender: FDA-Public Use
  Company Number: US-ROCHE-2264220

PATIENT
  Age: 54 Year
  Sex: Female

DRUGS (4)
  1. RITUXAN [Suspect]
     Active Substance: RITUXIMAB
     Indication: SYSTEMIC LUPUS ERYTHEMATOSUS
  2. RITUXAN [Suspect]
     Active Substance: RITUXIMAB
     Indication: RHEUMATOID ARTHRITIS
     Dosage: ONGOING NO
     Route: 042
     Dates: start: 20181001
  3. BENADRYL [Concomitant]
     Active Substance: DIPHENHYDRAMINE HYDROCHLORIDE
     Dosage: ONGOING:UNKNOWN
     Route: 065
  4. PREDNISONE. [Concomitant]
     Active Substance: PREDNISONE
     Dosage: ONGOING:YES
     Route: 065

REACTIONS (20)
  - Nausea [Not Recovered/Not Resolved]
  - Abdominal discomfort [Not Recovered/Not Resolved]
  - Gastrooesophageal reflux disease [Unknown]
  - Fibromyalgia [Not Recovered/Not Resolved]
  - Asthma [Not Recovered/Not Resolved]
  - Atelectasis [Not Recovered/Not Resolved]
  - Pain [Not Recovered/Not Resolved]
  - Acquired diaphragmatic eventration [Not Recovered/Not Resolved]
  - Hypoaesthesia [Not Recovered/Not Resolved]
  - Ill-defined disorder [Unknown]
  - Dysphagia [Not Recovered/Not Resolved]
  - Colitis [Not Recovered/Not Resolved]
  - Lymphoid tissue hyperplasia [Not Recovered/Not Resolved]
  - Inflammation [Not Recovered/Not Resolved]
  - Pyrexia [Unknown]
  - Feeling abnormal [Unknown]
  - Shock [Unknown]
  - Respiratory arrest [Unknown]
  - Sarcoidosis [Not Recovered/Not Resolved]
  - Diffuse large B-cell lymphoma [Not Recovered/Not Resolved]
